FAERS Safety Report 24788326 (Version 1)
Quarter: 2024Q4

REPORT INFORMATION
  Report Type: Spontaneous
  Country: US (occurrence: US)
  Receive Date: 20241230
  Receipt Date: 20241230
  Transmission Date: 20250115
  Serious: No
  Sender: BOEHRINGER INGELHEIM
  Company Number: US-Komodo Health-a23aa000004wJmLAAU

PATIENT
  Sex: Male

DRUGS (1)
  1. MICARDIS [Suspect]
     Active Substance: TELMISARTAN
     Indication: Blood pressure measurement

REACTIONS (1)
  - Drug effective for unapproved indication [Unknown]
